FAERS Safety Report 6617013-1 (Version None)
Quarter: 2010Q1

REPORT INFORMATION
  Report Type: 
  Country: None (occurrence: None)
  Receive Date: 20100302
  Receipt Date: 20100224
  Transmission Date: 20100710
  Serious: Yes (Death)
  Sender: FDA-Public Use
  Company Number: 2010JP001134

PATIENT
  Age: 64 Year
  Sex: Male

DRUGS (9)
  1. PROGRAF [Suspect]
     Indication: STEM CELL TRANSPLANT
     Dosage: UNKNOWN
  2. IDARUBICIN HCL [Concomitant]
  3. CYTARABINE [Concomitant]
  4. CYTARABINE [Concomitant]
  5. FLUDARABINE PHOSPHATE [Concomitant]
  6. BUSULFAN (BUSULFAN) [Concomitant]
  7. ANTI-THYMOCYTE GLOBULIN NOS [Concomitant]
  8. METHYLPREDNISOLONE [Concomitant]
  9. MEROPENEM [Concomitant]

REACTIONS (6)
  - ALTERED STATE OF CONSCIOUSNESS [None]
  - BACILLUS INFECTION [None]
  - CARDIAC ARREST [None]
  - MENINGITIS BACTERIAL [None]
  - RESPIRATORY ARREST [None]
  - SEPSIS [None]
